FAERS Safety Report 5810609-6 (Version None)
Quarter: 2008Q3

REPORT INFORMATION
  Report Type: 
  Country: None (occurrence: None)
  Receive Date: 20080710
  Receipt Date: 20080701
  Transmission Date: 20090109
  Serious: Yes (Hospitalization)
  Sender: FDA-Public Use
  Company Number: WAES 0807USA00534

PATIENT
  Age: 57 Year
  Sex: Male
  Weight: 78.9259 kg

DRUGS (15)
  1. CAP VORINOSTAT 400 MG [Suspect]
     Indication: ACUTE MYELOID LEUKAEMIA
     Dosage: 400 MG/DAILY/PO
     Route: 048
     Dates: start: 20080507, end: 20080520
  2. DECITABINE [Suspect]
     Indication: ACUTE MYELOID LEUKAEMIA
     Dosage: 38 MG/DAILY/IV; 40 MG/DAILY/IV
     Route: 042
     Dates: start: 20080502, end: 20080506
  3. DECITABINE [Suspect]
     Indication: ACUTE MYELOID LEUKAEMIA
     Dosage: 38 MG/DAILY/IV; 40 MG/DAILY/IV
     Route: 042
     Dates: start: 20080530, end: 20080603
  4. BIOTENE [Concomitant]
  5. LOMOTIL [Concomitant]
  6. MYCELEX [Concomitant]
  7. PEPCID [Concomitant]
  8. REGLAN [Concomitant]
  9. ACYCLOVIR [Concomitant]
  10. AMLODIPINE BESYLATE [Concomitant]
  11. CLONIDINE [Concomitant]
  12. FOLIC ACID [Concomitant]
  13. MAGNESIUM [Concomitant]
  14. POSACONAZOLE [Concomitant]
  15. PREDNISONE TAB [Concomitant]

REACTIONS (9)
  - DYSPNOEA [None]
  - FATIGUE [None]
  - FEBRILE NEUTROPENIA [None]
  - HAEMORRHOIDS [None]
  - INSOMNIA [None]
  - LEUKOPENIA [None]
  - PROCTALGIA [None]
  - TACHYCARDIA [None]
  - THROMBOCYTOPENIA [None]
